FAERS Safety Report 24906289 (Version 2)
Quarter: 2025Q1

REPORT INFORMATION
  Report Type: Spontaneous
  Country: US (occurrence: US)
  Receive Date: 20250130
  Receipt Date: 20250228
  Transmission Date: 20250409
  Serious: No
  Sender: Harrow Health
  Company Number: US-IMP-2025000025

PATIENT
  Age: 37 Year
  Sex: Female
  Weight: 64 kg

DRUGS (1)
  1. VEVYE [Suspect]
     Active Substance: CYCLOSPORINE
     Indication: Dry eye
     Route: 047
     Dates: start: 202412, end: 202412

REACTIONS (1)
  - Instillation site irritation [Recovered/Resolved]

NARRATIVE: CASE EVENT DATE: 20241201
